FAERS Safety Report 7994911-8 (Version None)
Quarter: 2011Q4

REPORT INFORMATION
  Report Type: 
  Country: None (occurrence: None)
  Receive Date: 20111220
  Receipt Date: 20111215
  Transmission Date: 20120403
  Serious: Yes (Life-Threatening, Other)
  Sender: FDA-Public Use
  Company Number: JP-PFIZER INC-2011288844

PATIENT
  Age: 58 Year
  Sex: Female
  Weight: 35 kg

DRUGS (22)
  1. ISOSORBIDE MONONITRATE [Concomitant]
     Indication: ANGINA PECTORIS
     Dosage: 20 MG, 2X/DAY
     Route: 048
     Dates: end: 20111123
  2. ANPLAG [Concomitant]
     Indication: ARTERIOSCLEROSIS OBLITERANS
     Dosage: 100 MG, 3X/DAY
     Route: 048
     Dates: start: 20111117, end: 20111123
  3. RABEPRAZOLE SODIUM [Concomitant]
     Indication: PEPTIC ULCER
     Dosage: 10 MG, 1X/DAY
     Route: 048
     Dates: end: 20111123
  4. VERAPAMIL HCL [Concomitant]
     Dosage: UNK
     Dates: start: 20111122
  5. CEFAMEZIN I? [Concomitant]
     Indication: INFECTION
     Dosage: UNK
     Route: 041
     Dates: start: 20111121, end: 20111123
  6. PENLES TAPE [Concomitant]
     Dosage: 6 PIECES
     Dates: start: 20111117
  7. VENCOLL [Concomitant]
     Indication: CONSTIPATION
     Dosage: 6 DF, 1X/DAY
     Route: 048
     Dates: start: 20111117, end: 20111123
  8. LYRICA [Suspect]
     Indication: PERIPHERAL ISCHAEMIA
     Dosage: 25 MG, 1X/DAY
     Route: 048
     Dates: start: 20111002, end: 20111010
  9. ESTAZOLAM [Concomitant]
     Indication: INSOMNIA
     Dosage: 2 MG, 1X/DAY
     Route: 048
     Dates: end: 20111123
  10. AZUNOL OINTMENT [Concomitant]
     Dosage: 10 G/DAY
     Dates: start: 20111120
  11. LYRICA [Suspect]
     Dosage: 25 MG, 2X/DAY
     Route: 048
     Dates: start: 20111011, end: 20111015
  12. LYRICA [Suspect]
     Dosage: 37.5 MG, 2X/DAY
     Route: 048
     Dates: start: 20111016, end: 20111123
  13. BUFFERIN A81 [Concomitant]
     Indication: ARTERIOSCLEROSIS OBLITERANS
     Dosage: 81 MG, 1X/DAY
     Route: 048
  14. MUCOSTA [Concomitant]
     Indication: PEPTIC ULCER
     Dosage: 100 MG, 2X/DAY
     Route: 048
     Dates: end: 20111123
  15. LOXONIN [Concomitant]
     Dosage: SINGLE DOSE
  16. DOPS [Concomitant]
     Indication: PROCEDURAL HYPOTENSION
     Dosage: 100 MG, 1X/DAY
     Route: 048
     Dates: end: 20111123
  17. LEVOTHYROXINE SODIUM [Concomitant]
     Indication: AUTOIMMUNE THYROIDITIS
     Dosage: 150 UG, 1X/DAY
     Route: 048
  18. RHYTHMY [Concomitant]
     Indication: INSOMNIA
     Dosage: 1 MG, 1X/DAY
     Route: 048
     Dates: end: 20111123
  19. FOSRENOL CHEWABLE [Concomitant]
     Indication: HYPERPHOSPHATAEMIA
     Dosage: 500 MG, 3X/DAY
     Route: 048
     Dates: start: 20111117, end: 20111123
  20. NITROGLYCERIN [Concomitant]
     Dosage: 0.3 MG, SINGLE
     Route: 048
     Dates: start: 20111117, end: 20111117
  21. PYRINAZIN [Concomitant]
     Dosage: 0.5 G, SINGLE
     Dates: start: 20111117, end: 20111117
  22. WARFARIN [Concomitant]
     Indication: ATRIAL FIBRILLATION
     Dosage: 2.25 MG, 1X/DAY
     Route: 048
     Dates: end: 20111123

REACTIONS (4)
  - SEPSIS [None]
  - ARRHYTHMIA [None]
  - HYPOGLYCAEMIA [None]
  - COMA [None]
